FAERS Safety Report 10175949 (Version 1)
Quarter: 2014Q2

REPORT INFORMATION
  Report Type: Spontaneous
  Country: US (occurrence: None)
  Receive Date: 20140425
  Receipt Date: 20140425
  Transmission Date: 20141212
  Serious: No
  Sender: FDA-Public Use
  Company Number: AP356-00375-SPO-US

PATIENT
  Age: 85 Year
  Sex: Male
  Weight: 108 kg

DRUGS (7)
  1. BELVIQ [Suspect]
     Indication: WEIGHT DECREASED
     Route: 048
     Dates: start: 20130726, end: 20140112
  2. FUROSEMIDE (FUROSEMIDE) [Concomitant]
  3. AMLODIPINE (AMLODIPINE) [Concomitant]
  4. BABY ASPIRIN (ACETYLSALICYLIC ACID) [Concomitant]
  5. COUMADIN (WARFARIN SODIUM) [Concomitant]
  6. ERYTHROMYCIN (ERYTHROMYCIN) [Concomitant]
  7. POTASSIUM CITRATE [Concomitant]

REACTIONS (1)
  - Drug effect decreased [None]
